FAERS Safety Report 4503562-9 (Version None)
Quarter: 2004Q4

REPORT INFORMATION
  Report Type: 
  Country: None (occurrence: None)
  Receive Date: 20041112
  Receipt Date: 20041027
  Transmission Date: 20050328
  Serious: Yes (Death)
  Sender: FDA-Public Use
  Company Number: DEU-2004-0000972

PATIENT
  Sex: Male

DRUGS (1)
  1. PALLADONE [Suspect]
     Indication: PAIN
     Dosage: 16 MG, BID, ORAL
     Route: 048

REACTIONS (4)
  - CARDIAC ARREST [None]
  - CARDIAC FAILURE [None]
  - MEDICATION ERROR [None]
  - OVERDOSE [None]
